FAERS Safety Report 9185835 (Version 2)
Quarter: 2013Q2

REPORT INFORMATION
  Report Type: Spontaneous
  Country: DE (occurrence: DE)
  Receive Date: 20130325
  Receipt Date: 20130415
  Transmission Date: 20140414
  Serious: Yes (Other)
  Sender: FDA-Public Use
  Company Number: DE-AMGEN-DEUSP2013013058

PATIENT
  Sex: Female

DRUGS (1)
  1. PROLIA [Suspect]
     Indication: OSTEOPOROSIS
     Dosage: 60 MG, UNK
     Route: 058
     Dates: start: 20121111

REACTIONS (17)
  - Activities of daily living impaired [Unknown]
  - Wheelchair user [Unknown]
  - Mobility decreased [Unknown]
  - Confusional state [Recovered/Resolved]
  - Restlessness [Unknown]
  - Hypersomnia [Unknown]
  - Malaise [Unknown]
  - Decreased appetite [Unknown]
  - Headache [Unknown]
  - Abdominal pain [Unknown]
  - Social avoidant behaviour [Unknown]
  - Mood swings [Unknown]
  - Dizziness [Unknown]
  - Skin disorder [Unknown]
  - Wound [Unknown]
  - Asthenia [Unknown]
  - Fatigue [Unknown]
